FAERS Safety Report 8246227-2 (Version None)
Quarter: 2012Q1

REPORT INFORMATION
  Report Type: 
  Country: None (occurrence: None)
  Receive Date: 20120330
  Receipt Date: 20100525
  Transmission Date: 20120608
  Serious: No
  Sender: FDA-Public Use
  Company Number: US-MYLANLABS-2010S1009387

PATIENT
  Age: 67 Year
  Sex: Male
  Weight: 90.72 kg

DRUGS (1)
  1. ALBUTEROL SULFATE [Suspect]
     Indication: DYSPNOEA
     Route: 055
     Dates: start: 20100415, end: 20100430

REACTIONS (2)
  - FEELING JITTERY [None]
  - CARDIAC FLUTTER [None]
